FAERS Safety Report 11837610 (Version 3)
Quarter: 2016Q1

REPORT INFORMATION
  Report Type: Report from Study
  Country: NL (occurrence: NL)
  Receive Date: 20151215
  Receipt Date: 20160225
  Transmission Date: 20160525
  Serious: Yes (Death)
  Sender: FDA-Public Use
  Company Number: NL-ABBVIE-15P-114-1469412-00

PATIENT
  Sex: Male

DRUGS (1)
  1. LUCRIN [Suspect]
     Active Substance: LEUPROLIDE ACETATE
     Indication: PROSTATE CANCER
     Route: 058
     Dates: start: 20110414, end: 20151207

REACTIONS (5)
  - Neoplasm malignant [Fatal]
  - Metastasis [Fatal]
  - General physical health deterioration [Fatal]
  - Weight decreased [Fatal]
  - Bedridden [Fatal]
